FAERS Safety Report 4300225-X (Version None)
Quarter: 2004Q1

REPORT INFORMATION
  Report Type: 
  Country: None (occurrence: None)
  Receive Date: 20040218
  Receipt Date: 20040218
  Transmission Date: 20041129
  Serious: No
  Sender: FDA-Public Use
  Company Number: None

PATIENT
  Sex: Female
  Weight: 21.7727 kg

DRUGS (4)
  1. RYNA-12 S [Suspect]
     Indication: UPPER RESPIRATORY TRACT INFECTION
     Dosage: 16 Q BID PO
     Route: 048
     Dates: start: 20031202
  2. CIPRODEX [Concomitant]
  3. TYLENOL (CAPLET) [Concomitant]
  4. MOTRIN [Concomitant]

REACTIONS (1)
  - DEPRESSION [None]
